FAERS Safety Report 8885541 (Version 3)
Quarter: 2013Q1

REPORT INFORMATION
  Report Type: Spontaneous
  Country: FR (occurrence: FR)
  Receive Date: 20121101
  Receipt Date: 20130312
  Transmission Date: 20140127
  Serious: Yes (Disabling, Other)
  Sender: FDA-Public Use
  Company Number: FR-PFIZER INC-2012270374

PATIENT
  Age: 64 Year
  Sex: Female

DRUGS (4)
  1. FLUOROURACILE PFIZER [Suspect]
     Indication: COLON CANCER METASTATIC
     Dosage: UNK
     Route: 042
     Dates: start: 20120813
  2. IRINOTECAN [Suspect]
     Indication: COLON CANCER METASTATIC
     Dosage: 228 MG, UNK
     Route: 042
     Dates: start: 20120813, end: 20121104
  3. AVASTIN [Suspect]
     Indication: COLON CANCER METASTATIC
     Dosage: 220 MG, UNK
     Route: 042
     Dates: start: 20120813
  4. FOLINIC ACID [Concomitant]
     Dosage: UNK

REACTIONS (2)
  - Vocal cord paralysis [Recovering/Resolving]
  - Dysphonia [Recovering/Resolving]
